FAERS Safety Report 17191524 (Version 1)
Quarter: 2019Q4

REPORT INFORMATION
  Report Type: Spontaneous
  Country: US (occurrence: US)
  Receive Date: 20191221
  Receipt Date: 20191221
  Transmission Date: 20200122
  Serious: Yes (Death)
  Sender: FDA-Public Use
  Company Number: None

PATIENT
  Age: 71 Year
  Sex: Female
  Weight: 72.45 kg

DRUGS (6)
  1. MOTRIN [Concomitant]
     Active Substance: IBUPROFEN
  2. IBRANCE [Suspect]
     Active Substance: PALBOCICLIB
     Indication: BREAST CANCER
     Route: 048
     Dates: start: 20180622, end: 20191209
  3. XGEVA [Concomitant]
     Active Substance: DENOSUMAB
  4. VITAMIN D [Concomitant]
     Active Substance: VITAMIN D NOS
  5. VITAMIN B [Concomitant]
     Active Substance: VITAMIN B
  6. LETROZOLE. [Concomitant]
     Active Substance: LETROZOLE

REACTIONS (1)
  - Death [None]

NARRATIVE: CASE EVENT DATE: 20191210
